FAERS Safety Report 22643456 (Version 1)
Quarter: 2023Q2

REPORT INFORMATION
  Report Type: Spontaneous
  Country: US (occurrence: None)
  Receive Date: 20230627
  Receipt Date: 20230627
  Transmission Date: 20230721
  Serious: Yes (Other)
  Sender: FDA-Public Use
  Company Number: 2023A145404

PATIENT

DRUGS (1)
  1. BREZTRI [Suspect]
     Active Substance: BUDESONIDE\FORMOTEROL\GLYCOPYRROLATE
     Route: 055

REACTIONS (7)
  - Cerebrovascular accident [Unknown]
  - Memory impairment [Unknown]
  - Feeling abnormal [Unknown]
  - Device delivery system issue [Unknown]
  - Dyspnoea [Unknown]
  - Cough [Unknown]
  - Product use issue [Unknown]
